FAERS Safety Report 5166688-5 (Version None)
Quarter: 2006Q4

REPORT INFORMATION
  Report Type: 
  Country: None (occurrence: None)
  Receive Date: 20061207
  Receipt Date: 20061023
  Transmission Date: 20070319
  Serious: Yes (Other)
  Sender: FDA-Public Use
  Company Number: PHEH2006US13328

PATIENT
  Age: 64 Year
  Sex: Male
  Weight: 123.36 kg

DRUGS (1)
  1. ELIDEL [Suspect]
     Indication: DERMATITIS
     Dosage: UNK, BID AS NEEDED
     Route: 061

REACTIONS (7)
  - BIOPSY [None]
  - ERYTHEMA [None]
  - LESION EXCISION [None]
  - MYCOSIS FUNGOIDES [None]
  - RADIOTHERAPY [None]
  - SKIN LESION [None]
  - SWELLING [None]
